FAERS Safety Report 6135006-8 (Version None)
Quarter: 2009Q1

REPORT INFORMATION
  Report Type: 
  Country: None (occurrence: None)
  Receive Date: 20090327
  Receipt Date: 20090316
  Transmission Date: 20090719
  Serious: Yes (Other)
  Sender: FDA-Public Use
  Company Number: CA-JNJFOC-20090304866

PATIENT
  Age: 19 Month
  Sex: Male

DRUGS (1)
  1. REMICADE [Suspect]
     Indication: DRUG EXPOSURE DURING PREGNANCY

REACTIONS (1)
  - SMALL FOR DATES BABY [None]
